FAERS Safety Report 21396965 (Version 2)
Quarter: 2023Q1

REPORT INFORMATION
  Report Type: Report from Study
  Country: CA (occurrence: CA)
  Receive Date: 20220930
  Receipt Date: 20230324
  Transmission Date: 20230417
  Serious: Yes (Death, Other)
  Sender: FDA-Public Use
  Company Number: CA-JNJFOC-20220959664

PATIENT
  Age: 75 Year
  Sex: Female

DRUGS (1)
  1. REMICADE [Suspect]
     Active Substance: INFLIXIMAB
     Indication: Crohn^s disease
     Route: 042
     Dates: start: 20220830

REACTIONS (3)
  - Atrial fibrillation [Fatal]
  - Cardiac failure [Fatal]
  - Sepsis [Unknown]

NARRATIVE: CASE EVENT DATE: 20220901
